FAERS Safety Report 8761908 (Version 2)
Quarter: 2012Q4

REPORT INFORMATION
  Report Type: 
  Country: DE (occurrence: DE)
  Receive Date: 20120829
  Receipt Date: 20121003
  Transmission Date: 20130627
  Serious: Yes (Other)
  Sender: FDA-Public Use
  Company Number: DE-PFIZER INC-2012210999

PATIENT
  Age: 58 Year
  Sex: Female
  Weight: 50 kg

DRUGS (3)
  1. LYRICA [Suspect]
     Indication: CERVICAL ROOT PAIN
     Dosage: 25 mg, 2x/day
     Route: 048
     Dates: start: 20110512
  2. LYRICA [Suspect]
     Dosage: 75 mg, 2x/day, 1-0-1
     Dates: end: 20120829
  3. AMITRIPTYLINE [Suspect]
     Indication: INSOMNIA
     Dosage: 10 mg, 1x/day, 0-01
     Route: 048
     Dates: start: 20110111, end: 201208

REACTIONS (1)
  - Macular degeneration [Not Recovered/Not Resolved]
